FAERS Safety Report 7593997-2 (Version None)
Quarter: 2011Q3

REPORT INFORMATION
  Report Type: 
  Country: None (occurrence: None)
  Receive Date: 20110706
  Receipt Date: 20110627
  Transmission Date: 20111222
  Serious: Yes (Life-Threatening, Other)
  Sender: FDA-Public Use
  Company Number: DE-BAYER-2011-047919

PATIENT
  Age: 55 Year
  Sex: Male
  Weight: 80 kg

DRUGS (2)
  1. INTERFERON BETA-1B [Suspect]
     Indication: MULTIPLE SCLEROSIS
  2. INTERFERON BETA-1B [Suspect]
     Dosage: UNK
     Dates: start: 20080101

REACTIONS (6)
  - PSYCHOTIC DISORDER [None]
  - FALL [None]
  - SOMNAMBULISM [None]
  - FEELING HOT [None]
  - FRACTURE [None]
  - CHILLS [None]
